FAERS Safety Report 7863464-7 (Version None)
Quarter: 2011Q4

REPORT INFORMATION
  Report Type: 
  Country: None (occurrence: None)
  Receive Date: 20111027
  Receipt Date: 20101206
  Transmission Date: 20120403
  Serious: No
  Sender: FDA-Public Use
  Company Number: US-AMGEN-USASP2010007678

PATIENT
  Sex: Male

DRUGS (1)
  1. ENBREL [Suspect]
     Indication: RHEUMATOID ARTHRITIS
     Dates: start: 20090203

REACTIONS (2)
  - MYCOBACTERIUM TUBERCULOSIS COMPLEX TEST POSITIVE [None]
  - INJECTION SITE PAIN [None]
